FAERS Safety Report 5882863-6 (Version None)
Quarter: 2008Q3

REPORT INFORMATION
  Report Type: 
  Country: None (occurrence: None)
  Receive Date: 20080913
  Receipt Date: 20080819
  Transmission Date: 20090109
  Serious: No
  Sender: FDA-Public Use
  Company Number: US-ABBOTT-08P-163-0471615-00

PATIENT
  Sex: Female
  Weight: 63.56 kg

DRUGS (3)
  1. HUMIRA [Suspect]
     Indication: PSORIATIC ARTHROPATHY
     Dosage: LOADING DOSE
     Route: 058
     Dates: start: 20080301, end: 20080301
  2. HUMIRA [Suspect]
     Indication: PSORIASIS
     Route: 058
  3. HUMIRA [Suspect]
     Route: 058

REACTIONS (3)
  - ACCIDENTAL EXPOSURE [None]
  - ARTHRALGIA [None]
  - RASH GENERALISED [None]
